FAERS Safety Report 6033869-8 (Version None)
Quarter: 2009Q1

REPORT INFORMATION
  Report Type: 
  Country: None (occurrence: None)
  Receive Date: 20090112
  Receipt Date: 20090106
  Transmission Date: 20090719
  Serious: Yes (Death)
  Sender: FDA-Public Use
  Company Number: NL-BRISTOL-MYERS SQUIBB COMPANY-14462964

PATIENT
  Age: 32 Year
  Sex: Female

DRUGS (3)
  1. CISPLATIN [Suspect]
     Indication: HEPATIC NEOPLASM MALIGNANT
  2. ETOPOSIDE [Suspect]
     Indication: HEPATIC NEOPLASM MALIGNANT
     Dosage: 26 PER CYCLE
  3. BLEOMYCIN SULFATE [Suspect]
     Indication: HEPATIC NEOPLASM MALIGNANT

REACTIONS (3)
  - BONE MARROW FAILURE [None]
  - PREGNANCY [None]
  - SEPSIS [None]
